FAERS Safety Report 8164204-7 (Version None)
Quarter: 2012Q1

REPORT INFORMATION
  Report Type: 
  Country: None (occurrence: None)
  Receive Date: 20120224
  Receipt Date: 20120220
  Transmission Date: 20120608
  Serious: No
  Sender: FDA-Public Use
  Company Number: US-PFIZER INC-2012046888

PATIENT
  Sex: Female

DRUGS (1)
  1. NORGESTREL AND ETHINYL ESTRADIOL [Suspect]
     Dosage: UNK
     Dates: end: 20120201

REACTIONS (8)
  - DRUG INEFFECTIVE [None]
  - FEELING ABNORMAL [None]
  - ACNE [None]
  - UNINTENDED PREGNANCY [None]
  - VOMITING [None]
  - GASTROOESOPHAGEAL REFLUX DISEASE [None]
  - FATIGUE [None]
  - METRORRHAGIA [None]
